FAERS Safety Report 10025611 (Version 3)
Quarter: 2014Q2

REPORT INFORMATION
  Report Type: Spontaneous
  Country: US (occurrence: US)
  Receive Date: 20140320
  Receipt Date: 20140520
  Transmission Date: 20141212
  Serious: Yes (Hospitalization)
  Sender: FDA-Public Use
  Company Number: US-B.I. PHARMACEUTICALS,INC./RIDGEFIELD-2014-BI-11949BP

PATIENT
  Sex: Female
  Weight: 106.59 kg

DRUGS (19)
  1. PRADAXA [Suspect]
     Indication: ANTICOAGULANT THERAPY
     Route: 065
     Dates: start: 20110519, end: 201202
  2. PRADAXA [Suspect]
     Indication: ATRIAL FIBRILLATION
  3. ASPIRIN [Concomitant]
     Route: 065
  4. ALPRAZOLAM [Concomitant]
     Route: 065
  5. CEPHALEXIN [Concomitant]
     Route: 065
  6. CHOLECALCIFEROL [Concomitant]
     Route: 065
  7. DILTIAZEM [Concomitant]
     Route: 065
  8. EZETIMIBE [Concomitant]
     Route: 065
  9. FERROUS SULFATE [Concomitant]
     Route: 065
  10. FUROSEMIDE [Concomitant]
     Route: 065
  11. HYDROCODONE [Concomitant]
     Route: 065
  12. NOVOLOG [Concomitant]
     Route: 065
  13. INSULIN DETEMIR [Concomitant]
     Route: 065
  14. LEVOTHYROXINE [Concomitant]
     Route: 065
  15. METOPROLOL [Concomitant]
     Route: 065
  16. PANTOPRAZOLE [Concomitant]
     Route: 065
  17. POTASSIUM CHLORIDE [Concomitant]
     Route: 065
  18. ROSUVASTATIN [Concomitant]
     Route: 065
  19. WARFARIN [Concomitant]
     Route: 065

REACTIONS (6)
  - Gastrointestinal haemorrhage [Recovered/Resolved]
  - Cerebral haemorrhage [Unknown]
  - Respiratory failure [Unknown]
  - Gastric ulcer [Unknown]
  - Anaemia [Unknown]
  - Swelling [Unknown]
